FAERS Safety Report 8956715 (Version 1)
Quarter: 2012Q4

REPORT INFORMATION
  Report Type: Spontaneous
  Country: US (occurrence: None)
  Receive Date: 20121205
  Receipt Date: 20121205
  Transmission Date: 20130627
  Serious: Yes (Hospitalization)
  Sender: FDA-Public Use
  Company Number: None

PATIENT

DRUGS (2)
  1. PROTONIX [Suspect]
  2. PROTOPAM CHLORIDE [Suspect]
     Dosage: PROTOPAM Pralidoxime 1 gram

REACTIONS (2)
  - Product name confusion [None]
  - Medication error [None]
